FAERS Safety Report 5133837-4 (Version None)
Quarter: 2006Q4

REPORT INFORMATION
  Report Type: 
  Country: None (occurrence: None)
  Receive Date: 20061018
  Receipt Date: 20061002
  Transmission Date: 20070319
  Serious: Yes (Death, Hospitalization)
  Sender: FDA-Public Use
  Company Number: 2006000624

PATIENT
  Age: 59 Year
  Sex: Female

DRUGS (1)
  1. ROXANOL 100 [Suspect]
     Dosage: INTRATHECAL
     Route: 037

REACTIONS (5)
  - HEADACHE [None]
  - HYPERTENSION [None]
  - HYPOTENSION [None]
  - INCORRECT ROUTE OF DRUG ADMINISTRATION [None]
  - PROCEDURAL COMPLICATION [None]
